FAERS Safety Report 23060859 (Version 1)
Quarter: 2023Q4

REPORT INFORMATION
  Report Type: Spontaneous
  Country: TR (occurrence: TR)
  Receive Date: 20231012
  Receipt Date: 20231012
  Transmission Date: 20240110
  Serious: Yes (Other)
  Sender: FDA-Public Use
  Company Number: TR-PRINSTON PHARMACEUTICAL INC.-2023PRN00500

PATIENT
  Sex: Female

DRUGS (2)
  1. DULOXETINE [Suspect]
     Active Substance: DULOXETINE
     Indication: Depressive symptom
     Dosage: 30 MG; ^1 X 1^
  2. DULOXETINE [Suspect]
     Active Substance: DULOXETINE
     Indication: Somatic dysfunction
     Dosage: RESUMED

REACTIONS (1)
  - Oedema [Recovered/Resolved]
